FAERS Safety Report 5130474-2 (Version None)
Quarter: 2006Q4

REPORT INFORMATION
  Report Type: 
  Country: None (occurrence: None)
  Receive Date: 20061013
  Receipt Date: 20060928
  Transmission Date: 20070319
  Serious: Yes (Other)
  Sender: FDA-Public Use
  Company Number: US200609007094

PATIENT
  Age: 82 Year
  Sex: Female

DRUGS (3)
  1. HUMALOG [Suspect]
     Dosage: 4 U, 3/D BEFORE EACH MEAL,
  2. LANTUS [Concomitant]
  3. CORTICOSTEROIDS [Concomitant]

REACTIONS (11)
  - BLOOD GLUCOSE ABNORMAL [None]
  - DEMENTIA ALZHEIMER'S TYPE [None]
  - DRUG DEPENDENCE [None]
  - EROSIVE OESOPHAGITIS [None]
  - GASTROOESOPHAGEAL REFLUX DISEASE [None]
  - IMPAIRED SELF-CARE [None]
  - INSOMNIA [None]
  - MENTAL STATUS CHANGES [None]
  - OSTEOARTHRITIS [None]
  - PHARMACEUTICAL PRODUCT COMPLAINT [None]
  - PULMONARY FIBROSIS [None]
